FAERS Safety Report 17361324 (Version 1)
Quarter: 2020Q1

REPORT INFORMATION
  Report Type: Spontaneous
  Country: US (occurrence: US)
  Receive Date: 20200117
  Receipt Date: 20200117
  Transmission Date: 20200409
  Serious: Yes (Other)
  Sender: FDA-Public Use
  Company Number: None

PATIENT
  Age: 61 Year
  Sex: Female
  Weight: 49.9 kg

DRUGS (2)
  1. FERAHEME [Suspect]
     Active Substance: FERUMOXYTOL NON-STOICHIOMETRIC MAGNETITE
     Indication: IRON DEFICIENCY ANAEMIA
     Dosage: ?          OTHER FREQUENCY:TWICE OVER 2WKS;?
     Route: 042
     Dates: start: 20190417
  2. FERUMOXYTOL [Suspect]
     Active Substance: FERUMOXYTOL NON-STOICHIOMETRIC MAGNETITE
     Dosage: ?          OTHER DOSE:1000NS;?
     Route: 042
     Dates: start: 20190424

REACTIONS (5)
  - Magnetic resonance imaging abnormal [None]
  - Haemosiderin stain [None]
  - Magnetic resonance imaging liver abnormal [None]
  - Magnetic resonance imaging spinal abnormal [None]
  - Therapeutic product effect prolonged [None]

NARRATIVE: CASE EVENT DATE: 20190909
